FAERS Safety Report 7293199-3 (Version None)
Quarter: 2011Q1

REPORT INFORMATION
  Report Type: 
  Country: None (occurrence: None)
  Receive Date: 20110215
  Receipt Date: 20110208
  Transmission Date: 20110831
  Serious: Yes (Hospitalization)
  Sender: FDA-Public Use
  Company Number: DE-PFIZER INC-DE-WYE-G04055609

PATIENT
  Age: 72 Year
  Sex: Female
  Weight: 80 kg

DRUGS (22)
  1. DIGITOXIN [Concomitant]
     Indication: ATRIAL FIBRILLATION
     Dosage: 0.07 MG, 1X/DAY
     Route: 048
     Dates: start: 20090101, end: 20090422
  2. FERRO SANOL [Concomitant]
     Indication: IRON DEFICIENCY ANAEMIA
     Dosage: 40 MG, 1X/DAY
     Route: 048
     Dates: start: 20090301, end: 20090422
  3. FUROSEMIDE [Concomitant]
     Indication: HYPERTENSION
     Dosage: 40 MG, 1X/DAY
     Route: 048
     Dates: start: 20090101
  4. RAMIPRIL [Concomitant]
     Indication: HYPERTENSION
     Dosage: 1.25 MG, 1X/DAY
     Route: 065
     Dates: start: 20090201, end: 20090422
  5. TORASEMIDE [Concomitant]
     Indication: HYPERTENSION
     Dosage: 5 MG, 1X/DAY
     Route: 048
     Dates: start: 20090301, end: 20090422
  6. TAZOBAC EF [Interacting]
     Indication: URINARY TRACT INFECTION
  7. PANTOPRAZOLE [Interacting]
     Dosage: 40.0 MG, 1X/DAY
     Route: 048
     Dates: start: 20090101
  8. SULTAMICILLIN [Interacting]
     Indication: UROSEPSIS
     Dosage: 3.0 G, 3X/DAY
     Route: 042
     Dates: start: 20090313, end: 20090314
  9. ISCOVER [Concomitant]
     Indication: MYOCARDIAL INFARCTION
     Dosage: 75 MG, 1X/DAY
     Route: 048
     Dates: start: 20090101
  10. GABAPENTIN [Concomitant]
     Indication: PHANTOM PAIN
     Dosage: 100 MG, 3X/DAY
     Route: 048
     Dates: start: 20090201, end: 20090422
  11. METOPROLOL [Concomitant]
     Indication: HYPERTENSION
     Dosage: 25 MG, 1X/DAY
     Route: 048
     Dates: start: 20090101, end: 20090429
  12. XIPAMIDE [Concomitant]
     Indication: HYPERTENSION
     Dosage: 20 MG, 1X/DAY
     Route: 048
     Dates: start: 20090101, end: 20090422
  13. TAZOBAC EF [Suspect]
     Indication: UROSEPSIS
     Dosage: 3 DF, 3X/DAY
     Route: 041
     Dates: start: 20090315, end: 20090324
  14. METRONIDAZOLE [Interacting]
     Dosage: 500 MG, 2X/DAY
     Route: 048
     Dates: start: 20090425, end: 20090428
  15. TAVANIC [Interacting]
     Indication: URINARY TRACT INFECTION
     Dosage: 500.0 MG, 1X/DAY
     Route: 048
     Dates: start: 20090203, end: 20090209
  16. INSULIN ACTRAPID ^NOVO NORDISK^ [Concomitant]
     Indication: TYPE 2 DIABETES MELLITUS
     Dosage: 3 DF, 3X/DAY
     Route: 058
     Dates: start: 20090101
  17. TAVANIC [Interacting]
     Dosage: 500 MG, 1X/DAY
     Route: 048
     Dates: start: 20090423, end: 20090427
  18. ALLOPURINOL [Concomitant]
     Indication: GOUT
     Dosage: 150 MG, 1X/DAY
     Route: 048
     Dates: start: 20090101, end: 20090422
  19. INSULIN DETEMIR [Concomitant]
     Indication: TYPE 2 DIABETES MELLITUS
     Dosage: 14 IU, 1X/DAY
     Route: 058
     Dates: start: 20090101
  20. METRONIDAZOLE [Interacting]
     Indication: DIARRHOEA
     Dosage: 500 MG, 2X/DAY
     Route: 048
     Dates: start: 20090217, end: 20090226
  21. SULTAMICILLIN [Interacting]
     Indication: URINARY TRACT INFECTION
  22. ASPIRIN [Concomitant]
     Indication: ISCHAEMIC HEART DISEASE PROPHYLAXIS
     Dosage: 100 MG, 1X/DAY
     Route: 048
     Dates: start: 20090101

REACTIONS (2)
  - DRUG INTERACTION [None]
  - CLOSTRIDIUM DIFFICILE COLITIS [None]
